FAERS Safety Report 5498922-6 (Version None)
Quarter: 2007Q4

REPORT INFORMATION
  Report Type: 
  Country: None (occurrence: None)
  Receive Date: 20071026
  Receipt Date: 20071017
  Transmission Date: 20080405
  Serious: Yes (Other)
  Sender: FDA-Public Use
  Company Number: US-SP-2007-03513

PATIENT
  Sex: Female

DRUGS (7)
  1. IMOVAX RABIES I.D. [Suspect]
     Indication: ACCIDENTAL EXPOSURE
     Route: 065
     Dates: start: 20070924
  2. IMOVAX RABIES I.D. [Suspect]
     Route: 065
     Dates: start: 20070924
  3. HUMAN RABIES IMMUNOGLOBULIN (300 IU/2 ML) [Suspect]
     Indication: ACCIDENTAL EXPOSURE
     Route: 065
     Dates: start: 19970827
  4. HUMAN RABIES IMMUNOGLOBULIN (300 IU/2 ML) [Suspect]
     Route: 065
     Dates: start: 19970827
  5. SYNTHROID [Concomitant]
  6. AVAPRO [Concomitant]
  7. CARDIZEM CD [Concomitant]

REACTIONS (3)
  - ADRENAL NEOPLASM [None]
  - CATARACT NUCLEAR [None]
  - CATARACT SUBCAPSULAR [None]
